FAERS Safety Report 17698784 (Version 1)
Quarter: 2020Q2

REPORT INFORMATION
  Report Type: Spontaneous
  Country: FR (occurrence: FR)
  Receive Date: 20200423
  Receipt Date: 20200423
  Transmission Date: 20200714
  Serious: Yes (Other)
  Sender: FDA-Public Use
  Company Number: FR-TEVA-2020-FR-1227042

PATIENT
  Age: 54 Year
  Sex: Female
  Weight: 80 kg

DRUGS (3)
  1. ANDROCUR 50 MG, COMPRIM? [Suspect]
     Active Substance: CYPROTERONE ACETATE
     Dosage: 25MG/J
     Route: 048
     Dates: start: 2016, end: 20180910
  2. ANDROCUR 50 MG, COMPRIM? [Suspect]
     Active Substance: CYPROTERONE ACETATE
     Indication: ACNE
     Dosage: 50 MG SINCE 1993 TO  2016 AND T25MG/J DE 2016 AU 10/09/2018
     Route: 048
     Dates: start: 1993, end: 2016
  3. ESTREVA 0,1 %, GEL [Suspect]
     Active Substance: ESTRADIOL
     Indication: ACNE
     Route: 061
     Dates: start: 1993

REACTIONS (1)
  - Meningioma [Recovering/Resolving]

NARRATIVE: CASE EVENT DATE: 20180903
